FAERS Safety Report 21289525 (Version 1)
Quarter: 2022Q3

REPORT INFORMATION
  Report Type: Spontaneous
  Country: US (occurrence: US)
  Receive Date: 20220902
  Receipt Date: 20220902
  Transmission Date: 20221027
  Serious: Yes (Hospitalization)
  Sender: FDA-Public Use
  Company Number: US-TEVA-2022-US-2068177

PATIENT
  Age: 73 Year
  Sex: Male
  Weight: 115.67 kg

DRUGS (2)
  1. CLOZAPINE [Suspect]
     Active Substance: CLOZAPINE
     Indication: Paranoia
     Dosage: 150 MILLIGRAM DAILY; UNIT DOSE: 150 MG, AT BEDTIME
     Route: 048
  2. CLOZAPINE [Suspect]
     Active Substance: CLOZAPINE
     Indication: Schizophrenia

REACTIONS (3)
  - Asthenia [Unknown]
  - Feeling abnormal [Unknown]
  - Hyperkalaemia [Unknown]

NARRATIVE: CASE EVENT DATE: 20220822
